FAERS Safety Report 14268160 (Version 1)
Quarter: 2017Q4

REPORT INFORMATION
  Report Type: Spontaneous
  Country: US (occurrence: None)
  Receive Date: 20171211
  Receipt Date: 20171211
  Transmission Date: 20180321
  Serious: Yes (Hospitalization)
  Sender: FDA-Public Use
  Company Number: None

PATIENT
  Age: 85 Year
  Sex: Female

DRUGS (1)
  1. CAPECITABINE 500MG MYLAN [Suspect]
     Active Substance: CAPECITABINE
     Indication: BREAST CANCER
     Dosage: 2 TABLETS TWICE DAILY ORAL
     Route: 048
     Dates: start: 20160831, end: 201711

REACTIONS (2)
  - Urinary tract infection [None]
  - Atrial fibrillation [None]

NARRATIVE: CASE EVENT DATE: 20171207
